FAERS Safety Report 4638472-X (Version None)
Quarter: 2005Q2

REPORT INFORMATION
  Report Type: 
  Country: None (occurrence: None)
  Receive Date: 20050418
  Receipt Date: 20050408
  Transmission Date: 20051028
  Serious: Yes (Hospitalization)
  Sender: FDA-Public Use
  Company Number: 200510141BYL

PATIENT
  Age: 62 Year
  Sex: Female
  Weight: 49 kg

DRUGS (11)
  1. ASPIRIN [Suspect]
     Indication: MYOCARDIAL ISCHAEMIA
     Dosage: 100 MG, QD, ORAL
     Route: 048
     Dates: start: 20041208, end: 20050208
  2. ISOSORBIDE MONONITRATE [Suspect]
     Indication: MYOCARDIAL ISCHAEMIA
     Dosage: ORAL
     Route: 048
     Dates: start: 20050119, end: 20050208
  3. SIGMART [Concomitant]
  4. BENZALIN [Concomitant]
  5. ZANTAC [Concomitant]
  6. SENNOSIDE [Concomitant]
  7. SLOW-K [Concomitant]
  8. MARZULENE S [Concomitant]
  9. PREDONINE [Concomitant]
  10. HYPEN [Concomitant]
  11. MIDPELIQ [Concomitant]

REACTIONS (2)
  - RASH GENERALISED [None]
  - THROMBOCYTOPENIA [None]
